FAERS Safety Report 16256283 (Version 3)
Quarter: 2019Q2

REPORT INFORMATION
  Report Type: Spontaneous
  Country: KR (occurrence: KR)
  Receive Date: 20190430
  Receipt Date: 20190508
  Transmission Date: 20190711
  Serious: Yes (Death, Hospitalization, Other)
  Sender: FDA-Public Use
  Company Number: KR-009507513-1904KOR013264

PATIENT
  Sex: Male

DRUGS (19)
  1. TRIDOL (TRAMADOL HYDROCHLORIDE) [Concomitant]
     Dosage: QUANTITY 3, DAYS 7
     Dates: start: 20190122
  2. TAMIPOOL [Concomitant]
     Active Substance: VITAMINS
     Dosage: QUANTITY 1, DAYS 7
     Dates: start: 20190120
  3. TRIDOL (TRAMADOL HYDROCHLORIDE) [Concomitant]
     Dosage: QUANTITY 1, DAYS 1
     Dates: start: 20190119
  4. HEPATAMINE INJECTION [Concomitant]
     Dosage: QUANTITY 1, DAYS 2
     Dates: start: 20190120
  5. TAMIPOOL [Concomitant]
     Active Substance: VITAMINS
     Dosage: QUANTITY 2, DAYS 1
     Dates: start: 20190121
  6. DEXTROSE. [Concomitant]
     Active Substance: DEXTROSE
     Dosage: 50 MILLILITER (QUANTITY 3, DAYS 17)
     Dates: start: 20190122
  7. COMBIFLEX [Concomitant]
     Dosage: 1000 ML (QUANTITY 1, DAYS 6)
     Dates: start: 20190121
  8. SODIUM CHLORIDE. [Concomitant]
     Active Substance: SODIUM CHLORIDE
     Dosage: 20 MILLILITER (QUANTITY 2, DAYS 2)
     Dates: start: 20190121
  9. TAZOPERAN [Concomitant]
     Dosage: 4.5 GRAM (QUANTITY 2, DAYS 3)
     Dates: start: 20190121
  10. MORPHINE HYDROCHLORIDE [Concomitant]
     Active Substance: MORPHINE HYDROCHLORIDE
     Dosage: QUANTITY 4, DAYS 2
     Dates: start: 20190120
  11. MORPHINE HYDROCHLORIDE [Concomitant]
     Active Substance: MORPHINE HYDROCHLORIDE
     Dosage: QUANTITY 2, DAYS 1
     Dates: start: 20190122
  12. STERILE WATER [Concomitant]
     Active Substance: WATER
     Dosage: 20 MILLILITER (QUANTITY 1, DAYS 6)
     Dates: start: 20190120
  13. SODIUM CHLORIDE. [Concomitant]
     Active Substance: SODIUM CHLORIDE
     Dosage: 20 MILLILITER (QUANTITY 3, DAYS 23)
     Dates: start: 20190122
  14. TAZOPERAN [Concomitant]
     Dosage: 4.5 GRAM (QUANTITY 3, DAYS 23)
     Dates: start: 20190122
  15. STERILE WATER [Concomitant]
     Active Substance: WATER
     Dosage: 20 MILLILITER (QUANTITY 2, DAYS 2)
     Dates: start: 20190121
  16. KEYTRUDA [Suspect]
     Active Substance: PEMBROLIZUMAB
     Indication: MALIGNANT NEOPLASM OF THYMUS
     Dosage: UNK
     Dates: start: 20190125, end: 20190125
  17. TRIDOL (TRAMADOL HYDROCHLORIDE) [Concomitant]
     Dosage: QUANTITY 2, DAYS 1
     Dates: start: 20190121
  18. DEXTROSE. [Concomitant]
     Active Substance: DEXTROSE
     Dosage: 50 MILLILITER (QUANTITY 2, DAYS 1)
     Dates: start: 20190121
  19. MORPHINE HYDROCHLORIDE [Concomitant]
     Active Substance: MORPHINE HYDROCHLORIDE
     Dosage: QUANTITY 3, DAYS 1
     Dates: start: 20190119

REACTIONS (3)
  - Product use in unapproved indication [Unknown]
  - Adverse event [Unknown]
  - Multiple organ dysfunction syndrome [Fatal]

NARRATIVE: CASE EVENT DATE: 2019
